FAERS Safety Report 16440462 (Version 6)
Quarter: 2020Q3

REPORT INFORMATION
  Report Type: Report from Study
  Country: US (occurrence: US)
  Receive Date: 20190617
  Receipt Date: 20200818
  Transmission Date: 20201102
  Serious: Yes (Hospitalization)
  Sender: FDA-Public Use
  Company Number: US-REGENERON PHARMACEUTICALS, INC.-2019-36701

PATIENT

DRUGS (15)
  1. SCOPOLAMINE                        /00008701/ [Concomitant]
     Active Substance: SCOPOLAMINE
     Indication: NAUSEA
     Dosage: 1 PATCH, PRN
     Route: 061
     Dates: start: 20190328, end: 20190509
  2. MULTIVITAMIN                       /00097801/ [Concomitant]
     Active Substance: VITAMINS
     Indication: PROPHYLAXIS
     Dosage: UNK, QD
     Route: 048
     Dates: end: 20190509
  3. POLYETHYLENE GLYCOL 3350. [Concomitant]
     Active Substance: POLYETHYLENE GLYCOL 3350
     Indication: CONSTIPATION PROPHYLAXIS
     Dosage: 17 G, BID
     Route: 048
     Dates: end: 20190509
  4. RADIOTHERAPY [Concomitant]
     Active Substance: RADIATION THERAPY
     Indication: BRAIN STEM GLIOMA
     Dosage: UNK
     Dates: end: 20190424
  5. DOCUSATE SODIUM. [Concomitant]
     Active Substance: DOCUSATE SODIUM
     Indication: CONSTIPATION PROPHYLAXIS
     Dosage: 100 MG, Q12H
     Route: 048
     Dates: end: 20190509
  6. RANITIDINE. [Concomitant]
     Active Substance: RANITIDINE
     Indication: PROPHYLAXIS AGAINST GASTROINTESTINAL ULCER
     Dosage: 150 MG, BID
     Route: 048
  7. ACETAMINOPHEN. [Concomitant]
     Active Substance: ACETAMINOPHEN
     Indication: HEADACHE
     Dosage: 500 MG, PRN
     Route: 048
     Dates: start: 20190321
  8. BEVACIZUMAB. [Concomitant]
     Active Substance: BEVACIZUMAB
     Indication: TUMOUR PSEUDOPROGRESSION
     Dosage: 700 MG, TWO INFUSIONS ON 16?MAY?2019 AND 30?MAY?2019
     Route: 042
     Dates: start: 20190516, end: 20190530
  9. DEPAKOTE [Concomitant]
     Active Substance: DIVALPROEX SODIUM
     Indication: SEIZURE PROPHYLAXIS
     Dosage: 500 MG, BID
     Route: 048
     Dates: start: 20190404, end: 20190509
  10. CEMIPLIMAB [Suspect]
     Active Substance: CEMIPLIMAB
     Dosage: 3 MG/KG, Q2W
     Route: 042
     Dates: start: 20190620, end: 20190828
  11. DEXAMETHASONE. [Concomitant]
     Active Substance: DEXAMETHASONE
     Indication: PERITUMOURAL OEDEMA
     Dosage: 2 MG, BID
     Route: 048
     Dates: end: 20190718
  12. CEMIPLIMAB [Suspect]
     Active Substance: CEMIPLIMAB
     Indication: BRAIN STEM GLIOMA
     Dosage: 3 MG/KG, Q2W
     Route: 042
     Dates: start: 20190314, end: 20190606
  13. EQUATE ADVANCED LUBRICANT EYE DROPS [Concomitant]
     Indication: DRY EYE
     Dosage: 1 DROP, QOH
     Route: 047
  14. TRAZODONE [Concomitant]
     Active Substance: TRAZODONE HYDROCHLORIDE
     Indication: INSOMNIA
     Dosage: 50 MG, QD
     Route: 048
     Dates: start: 20190517, end: 20190530
  15. ZOFRAN [Concomitant]
     Active Substance: ONDANSETRON HYDROCHLORIDE
     Indication: NAUSEA
     Dosage: 8 MG, PRN
     Route: 048
     Dates: start: 20190328, end: 20190523

REACTIONS (1)
  - Arthralgia [Recovered/Resolved]

NARRATIVE: CASE EVENT DATE: 20190609
